FAERS Safety Report 17440185 (Version 1)
Quarter: 2020Q1

REPORT INFORMATION
  Report Type: Report from Study
  Country: US (occurrence: US)
  Receive Date: 20200220
  Receipt Date: 20200220
  Transmission Date: 20200409
  Serious: Yes (Other)
  Sender: FDA-Public Use
  Company Number: NVSC2020US045140

PATIENT
  Sex: Female

DRUGS (1)
  1. GILENYA [Suspect]
     Active Substance: FINGOLIMOD HYDROCHLORIDE
     Indication: MULTIPLE SCLEROSIS
     Dosage: 0.5 MG, QD
     Route: 048
     Dates: start: 20200131

REACTIONS (11)
  - Dysphagia [Unknown]
  - Loss of consciousness [Recovered/Resolved]
  - Diplopia [Unknown]
  - Pain in extremity [Unknown]
  - Seizure [Unknown]
  - Musculoskeletal pain [Recovered/Resolved]
  - Mood altered [Unknown]
  - Nausea [Recovered/Resolved]
  - Grip strength decreased [Unknown]
  - Accident [Unknown]
  - Diarrhoea [Recovered/Resolved]
